FAERS Safety Report 15075040 (Version 1)
Quarter: 2018Q2

REPORT INFORMATION
  Report Type: Spontaneous
  Country: US (occurrence: US)
  Receive Date: 20180627
  Receipt Date: 20180627
  Transmission Date: 20180711
  Serious: Yes (Other)
  Sender: FDA-Public Use
  Company Number: US-SAOL THERAPEUTICS-2017SAO01232

PATIENT
  Age: 57 Year
  Sex: Female

DRUGS (9)
  1. BACLOFEN. [Suspect]
     Active Substance: BACLOFEN
     Indication: SPINAL PAIN
     Dosage: 355 ?G, \DAY
     Route: 037
     Dates: start: 20170419, end: 201705
  2. BACLOFEN. [Suspect]
     Active Substance: BACLOFEN
     Dosage: 345 ?G, \DAY
     Route: 037
     Dates: start: 201705, end: 201706
  3. FENTANYL. [Suspect]
     Active Substance: FENTANYL
     Dosage: 355 ?G, \DAY
     Route: 037
     Dates: start: 20170419, end: 201705
  4. FENTANYL. [Suspect]
     Active Substance: FENTANYL
     Dosage: 335 ?G, \DAY
     Route: 037
     Dates: start: 201706, end: 20170718
  5. FENTANYL. [Suspect]
     Active Substance: FENTANYL
     Dosage: 295 ?G, \DAY
     Route: 037
     Dates: start: 20170718
  6. BACLOFEN. [Suspect]
     Active Substance: BACLOFEN
     Dosage: 335 ?G, \DAY
     Route: 037
     Dates: start: 201706, end: 20170718
  7. UNSPECIFIED BLOOD THINNERS [Concomitant]
  8. FENTANYL. [Suspect]
     Active Substance: FENTANYL
     Dosage: 345 ?G, UNK
     Route: 037
     Dates: start: 201705, end: 201706
  9. BACLOFEN. [Suspect]
     Active Substance: BACLOFEN
     Dosage: 295 ?G, \DAY
     Route: 037
     Dates: start: 20170718

REACTIONS (10)
  - Pain [Unknown]
  - Weight decreased [Unknown]
  - Emotional distress [Unknown]
  - Gait disturbance [Unknown]
  - Pain in extremity [Unknown]
  - Overdose [Unknown]
  - Medical device discomfort [Not Recovered/Not Resolved]
  - Device dislocation [Not Recovered/Not Resolved]
  - Implant site erosion [Unknown]
  - Off label use [Unknown]

NARRATIVE: CASE EVENT DATE: 2017
